FAERS Safety Report 18251493 (Version 2)
Quarter: 2020Q4

REPORT INFORMATION
  Report Type: Spontaneous
  Country: US (occurrence: US)
  Receive Date: 20200910
  Receipt Date: 20201106
  Transmission Date: 20210113
  Serious: No
  Sender: FDA-Public Use
  Company Number: US-ASTRAZENECA-2020SF14359

PATIENT
  Sex: Female
  Weight: 117.9 kg

DRUGS (2)
  1. SYMBICORT [Suspect]
     Active Substance: BUDESONIDE\FORMOTEROL FUMARATE DIHYDRATE
     Dosage: 160/4.5 MCG,2 PUFFS,TWO TIMES A DAY
     Route: 055
  2. VENTOLIN [Concomitant]
     Active Substance: ALBUTEROL SULFATE
     Indication: PROPHYLAXIS
     Dosage: AS REQUIRED
     Route: 055

REACTIONS (5)
  - Drug dose omission by device [Unknown]
  - Respiratory tract congestion [Unknown]
  - Product packaging quantity issue [Unknown]
  - Device failure [Unknown]
  - Wrong technique in device usage process [Unknown]
